FAERS Safety Report 17033469 (Version 2)
Quarter: 2019Q4

REPORT INFORMATION
  Report Type: Other
  Country: DE (occurrence: DE)
  Receive Date: 20191114
  Receipt Date: 20191122
  Transmission Date: 20200122
  Serious: Yes (Life-Threatening, Other)
  Sender: FDA-Public Use
  Company Number: DE-VALIDUS PHARMACEUTICALS LLC-DE-2019VAL000704

PATIENT

DRUGS (23)
  1. ACETYLSALICYLIC ACID [Suspect]
     Active Substance: ASPIRIN
     Indication: THROMBOSIS PROPHYLAXIS
     Dosage: 100 MG, QD
     Route: 048
     Dates: start: 19990819
  2. OXAZEPAM. [Suspect]
     Active Substance: OXAZEPAM
     Indication: RESTLESSNESS
     Dosage: 15 MG, QD
     Route: 048
     Dates: start: 19990819, end: 19990823
  3. GLUCOSE [Suspect]
     Active Substance: DEXTROSE
     Indication: VOLUME BLOOD DECREASED
     Dosage: 500 ML, QD, 5% INFUSION
     Route: 042
     Dates: start: 19990820, end: 19990823
  4. FUROSEMIDE. [Suspect]
     Active Substance: FUROSEMIDE
     Indication: CARDIAC FAILURE
     Dosage: 10 MG, QD
     Route: 042
     Dates: start: 19990820, end: 19990823
  5. MOLSIDOMINE [Suspect]
     Active Substance: MOLSIDOMINE
     Indication: MYOCARDIAL INFARCTION
     Dosage: 1 DF, TOTAL
     Route: 048
     Dates: start: 19990820, end: 19990820
  6. ACETYLSALICYLIC ACID [Suspect]
     Active Substance: ASPIRIN
     Indication: THROMBOSIS PROPHYLAXIS
     Dosage: 100 MG, QD
     Route: 048
     Dates: start: 19990819, end: 19990902
  7. HEPARIN SODIUM. [Suspect]
     Active Substance: HEPARIN SODIUM
     Indication: THROMBOSIS PROPHYLAXIS
     Dosage: UNK
     Route: 042
     Dates: start: 19990819, end: 19990820
  8. HEPARIN SODIUM. [Suspect]
     Active Substance: HEPARIN SODIUM
     Dosage: 10000 IU, QD
     Route: 058
     Dates: start: 19990821, end: 19990826
  9. SULFAMETHOXAZOLE AND TRIMETHOPRIM [Suspect]
     Active Substance: SULFAMETHOXAZOLE\TRIMETHOPRIM
     Indication: URINARY TRACT INFECTION
     Dosage: 1 DF, QD
     Route: 048
     Dates: start: 19990823, end: 19990828
  10. SOLU-DECORTIN-H [Concomitant]
     Active Substance: PREDNISOLONE SODIUM SUCCINATE
     Indication: PRODUCT USED FOR UNKNOWN INDICATION
     Dosage: UNK
     Dates: start: 19990901, end: 19990901
  11. CALCIUM CHLORIDE DIHYDRATE W/MAGNES/00622501/ [Suspect]
     Active Substance: CALCIUM CHLORIDE\MAGNESIUM CHLORIDE\POTASSIUM CHLORIDE\SODIUM CHLORIDE
     Indication: VOLUME BLOOD DECREASED
     Dosage: 500 ML, UNK
     Route: 042
     Dates: start: 19990819, end: 19990823
  12. CLEMASTINE [Concomitant]
     Active Substance: CLEMASTINE
     Indication: PRODUCT USED FOR UNKNOWN INDICATION
     Dosage: UNK
     Dates: start: 19990901, end: 19990901
  13. PIRETANIDE SODIUM [Suspect]
     Active Substance: PIRETANIDE SODIUM
     Indication: CARDIAC FAILURE
     Dosage: UNK
     Route: 048
     Dates: start: 19990820, end: 19990902
  14. OMEPRAZOLE. [Suspect]
     Active Substance: OMEPRAZOLE
     Indication: PROPHYLAXIS AGAINST GASTROINTESTINAL ULCER
     Dosage: 20 MG, QD
     Route: 048
     Dates: start: 19990819, end: 19990831
  15. ALLOPURINOL. [Suspect]
     Active Substance: ALLOPURINOL
     Indication: HYPERURICAEMIA
     Dosage: 150 MG, QD
     Route: 048
     Dates: start: 19990820, end: 19990826
  16. HYDROCHLOROTHIAZIDE. [Suspect]
     Active Substance: HYDROCHLOROTHIAZIDE
     Indication: CARDIAC FAILURE
     Dosage: 0.5 DF, QD
     Route: 048
     Dates: start: 19990823, end: 19990830
  17. REMESTAN [Suspect]
     Active Substance: TEMAZEPAM
     Indication: RESTLESSNESS
     Dosage: 1 DF, QD
     Route: 048
     Dates: start: 19990819, end: 19990823
  18. DECORTIN [Concomitant]
     Active Substance: PREDNISONE
     Indication: PRODUCT USED FOR UNKNOWN INDICATION
     Dosage: UNK
     Dates: start: 19990902, end: 19990902
  19. MARCUMAR [Suspect]
     Active Substance: PHENPROCOUMON
     Indication: THROMBOSIS PROPHYLAXIS
     Dosage: 1 DF, QD
     Route: 048
     Dates: start: 19990821
  20. NITROGLYCERIN. [Suspect]
     Active Substance: NITROGLYCERIN
     Indication: MYOCARDIAL INFARCTION
     Dosage: 2 MG, QH
     Route: 042
     Dates: start: 19990819, end: 19990820
  21. FUROSEMIDE. [Suspect]
     Active Substance: FUROSEMIDE
     Indication: CARDIAC FAILURE
     Dosage: 2 DF, QD
     Route: 048
     Dates: start: 19990823, end: 19990830
  22. LACTULOSE. [Suspect]
     Active Substance: LACTULOSE
     Indication: CONSTIPATION
     Dosage: 30 ML, QD
     Route: 048
     Dates: start: 19990820
  23. POTASSIUM CHLORIDE. [Suspect]
     Active Substance: POTASSIUM CHLORIDE
     Indication: HYPOKALAEMIA
     Dosage: UNK
     Route: 042
     Dates: start: 19990819, end: 19990823

REACTIONS (12)
  - Conjunctival hyperaemia [Recovering/Resolving]
  - Blood creatinine increased [Unknown]
  - Mouth ulceration [Recovering/Resolving]
  - Haemorrhage [Recovering/Resolving]
  - Urinary tract infection [Recovering/Resolving]
  - Blood urea increased [Unknown]
  - Rash [Recovering/Resolving]
  - Genital erosion [Recovering/Resolving]
  - Toxic epidermal necrolysis [Recovering/Resolving]
  - Nasal ulcer [Recovering/Resolving]
  - Blister [Recovering/Resolving]
  - Stevens-Johnson syndrome [Recovering/Resolving]

NARRATIVE: CASE EVENT DATE: 19990830
